FAERS Safety Report 8381804-X (Version None)
Quarter: 2012Q2

REPORT INFORMATION
  Report Type: 
  Country: None (occurrence: None)
  Receive Date: 20120522
  Receipt Date: 20120522
  Transmission Date: 20120825
  Serious: Yes (Life-Threatening, Other)
  Sender: FDA-Public Use
  Company Number: None

PATIENT
  Age: 22 Year
  Sex: Female
  Weight: 61.2356 kg

DRUGS (1)
  1. LORYNA [Suspect]
     Indication: CONTRACEPTION
     Dosage: 1 PILL DAY  1 PILL/DAY PO
     Route: 048

REACTIONS (1)
  - HYPOAESTHESIA [None]
